FAERS Safety Report 12395801 (Version 1)
Quarter: 2016Q2

REPORT INFORMATION
  Report Type: Report from Study
  Country: GB (occurrence: GB)
  Receive Date: 20160523
  Receipt Date: 20160523
  Transmission Date: 20160815
  Serious: Yes (Death, Hospitalization, Other)
  Sender: FDA-Public Use
  Company Number: GB-VALIDUS PHARMACEUTICALS LLC-GB-2014VAL000261

PATIENT
  Age: 40 Year
  Sex: Male
  Weight: 81.1 kg

DRUGS (16)
  1. METOPROLOL TARTRATE. [Suspect]
     Active Substance: METOPROLOL TARTRATE
     Indication: HYPERTENSION
     Dosage: 300 MG, UNK
     Route: 048
     Dates: start: 20120705
  2. PARACETAMOL [Suspect]
     Active Substance: ACETAMINOPHEN
     Indication: ANALGESIC THERAPY
     Dosage: 1000 MG, PRN
     Route: 048
     Dates: start: 20121112
  3. LIORESAL [Suspect]
     Active Substance: BACLOFEN
     Indication: CEREBROVASCULAR ACCIDENT
     Dosage: 274.29 ?G, QD (2000 MCG/ML) AMPOULE
     Route: 037
  4. BACLOFEN. [Concomitant]
     Active Substance: BACLOFEN
     Indication: CEREBROVASCULAR ACCIDENT
  5. LIORESAL [Suspect]
     Active Substance: BACLOFEN
     Dosage: 1 DF, (10 MG/20 ML)
     Route: 037
  6. IBUPROFEN. [Suspect]
     Active Substance: IBUPROFEN
     Indication: ANALGESIC THERAPY
     Dosage: 1200 MG, UNK
     Route: 048
     Dates: start: 20140109
  7. SERTRALINE [Suspect]
     Active Substance: SERTRALINE HYDROCHLORIDE
     Indication: DEPRESSION
     Dosage: 50 MG, UNK
     Route: 048
     Dates: start: 20121210, end: 20140101
  8. MIRTAZAPINE. [Suspect]
     Active Substance: MIRTAZAPINE
     Indication: PRODUCT USED FOR UNKNOWN INDICATION
     Dosage: UNK
     Dates: start: 20140522
  9. RAMIPRIL. [Suspect]
     Active Substance: RAMIPRIL
     Indication: HYPERTENSION
     Dosage: 2.5 MG, UNK
     Route: 048
     Dates: start: 20140113
  10. VENLAFAXINE [Suspect]
     Active Substance: VENLAFAXINE HYDROCHLORIDE
     Indication: DEPRESSION
     Dosage: 75 MG, UNK
     Route: 048
     Dates: start: 20140226
  11. CO-DYDRAMOL [Suspect]
     Active Substance: ACETAMINOPHEN\DIHYDROCODEINE
     Indication: ANALGESIC THERAPY
     Dosage: 2000 MG, UNK
     Route: 048
     Dates: start: 20140109
  12. BACLOFEN. [Concomitant]
     Active Substance: BACLOFEN
     Indication: MUSCLE SPASTICITY
     Dosage: 100 ?G/DAY
     Dates: start: 20140117, end: 20140119
  13. LIORESAL [Suspect]
     Active Substance: BACLOFEN
     Indication: MUSCLE SPASTICITY
     Dosage: 1 DF, (500 MCG/ML)
     Route: 037
  14. AMLODIPINE [Suspect]
     Active Substance: AMLODIPINE BESYLATE
     Indication: HYPERTENSION
     Dosage: 30 MG, UNK
     Route: 048
     Dates: start: 20120705
  15. SILDENAFIL. [Suspect]
     Active Substance: SILDENAFIL
     Indication: ERECTILE DYSFUNCTION
     Dosage: 50 MG, PRN
     Route: 048
     Dates: start: 20130220
  16. ZOPICLONE [Suspect]
     Active Substance: ZOPICLONE
     Indication: INSOMNIA
     Dosage: 3.75 MG, UNK
     Route: 048
     Dates: start: 20130220

REACTIONS (40)
  - Mental disorder [Unknown]
  - Erectile dysfunction [Unknown]
  - Anxiety [Recovered/Resolved]
  - Purulent discharge [Recovered/Resolved]
  - Cardiomegaly [Unknown]
  - Pain in extremity [Unknown]
  - Sudden death [Unknown]
  - Gamma-glutamyltransferase abnormal [Unknown]
  - Condition aggravated [Unknown]
  - Malaise [Unknown]
  - Muscular weakness [Unknown]
  - Alcohol poisoning [Fatal]
  - Fall [Unknown]
  - Scratch [Unknown]
  - Accidental death [Unknown]
  - Stress [Recovered/Resolved]
  - Hypotonia [Unknown]
  - Macrophages increased [Unknown]
  - Neutrophil count increased [Unknown]
  - Toxicity to various agents [Unknown]
  - Hepatic steatosis [Unknown]
  - Injury [Recovered/Resolved]
  - Blood ethanol increased [Unknown]
  - Conjunctival hyperaemia [Unknown]
  - Pulmonary oedema [Unknown]
  - Muscle spasticity [Unknown]
  - Wound dehiscence [Recovered/Resolved]
  - Nausea [Recovered/Resolved]
  - Petechiae [Unknown]
  - Insomnia [Unknown]
  - Onychomycosis [Unknown]
  - Pain [Unknown]
  - Scar [Unknown]
  - Depression [Unknown]
  - Therapeutic response unexpected [Unknown]
  - Wound infection [Recovered/Resolved]
  - Vomiting [Recovered/Resolved]
  - Implant site infection [Recovered/Resolved]
  - Self injurious behaviour [Recovered/Resolved]
  - Implant site extravasation [Recovered/Resolved]

NARRATIVE: CASE EVENT DATE: 2014
